FAERS Safety Report 6201535-1 (Version None)
Quarter: 2009Q2

REPORT INFORMATION
  Report Type: 
  Country: None (occurrence: None)
  Receive Date: 20090526
  Receipt Date: 20090515
  Transmission Date: 20091009
  Serious: Yes (Hospitalization)
  Sender: FDA-Public Use
  Company Number: US-AVENTIS-200914269US

PATIENT
  Sex: Male

DRUGS (4)
  1. LOVENOX [Suspect]
     Indication: ANTIPHOSPHOLIPID SYNDROME
     Route: 058
     Dates: start: 20060101, end: 20090313
  2. LOVENOX [Suspect]
     Route: 058
     Dates: start: 20090401
  3. UNKNOWN DRUG [Concomitant]
     Dosage: DOSE: 2 PUFFS AS NEEDED
  4. CRESTOR [Concomitant]
     Dosage: DOSE: 1 TABLET

REACTIONS (1)
  - COMPRESSION FRACTURE [None]
